FAERS Safety Report 10211252 (Version 2)
Quarter: 2014Q2

REPORT INFORMATION
  Report Type: Report from Study
  Country: CA (occurrence: CA)
  Receive Date: 20140602
  Receipt Date: 20140602
  Transmission Date: 20141212
  Serious: Yes (Other)
  Sender: FDA-Public Use
  Company Number: CA-SA-2014SA001501

PATIENT
  Age: 42 Year
  Sex: Male
  Weight: 113 kg

DRUGS (9)
  1. AUBAGIO [Suspect]
     Indication: RELAPSING-REMITTING MULTIPLE SCLEROSIS
     Dosage: PILL
     Route: 048
     Dates: start: 20131219
  2. COVERSYL [Concomitant]
     Indication: HYPERTENSION
     Route: 048
  3. MONOCOR [Concomitant]
     Indication: HYPERTENSION
     Route: 048
  4. LYRICA [Concomitant]
     Indication: PAIN
     Route: 048
  5. DEXILANT [Concomitant]
     Indication: ULCER
     Route: 048
  6. ZOPICLONE [Concomitant]
     Indication: SLEEP DISORDER
     Route: 048
  7. MELATONIN [Concomitant]
     Indication: SLEEP DISORDER
     Route: 048
  8. BISOPROLOL [Concomitant]
     Indication: HYPERTENSION
     Route: 048
  9. INDAPAMIDE [Concomitant]
     Indication: HYPERTENSION
     Route: 048

REACTIONS (16)
  - Angina pectoris [Unknown]
  - Chest discomfort [Unknown]
  - Dyspnoea [Unknown]
  - Ischaemia [Unknown]
  - Abdominal discomfort [Recovered/Resolved]
  - Gastroenteritis viral [Not Recovered/Not Resolved]
  - Diarrhoea [Recovering/Resolving]
  - Chills [Not Recovered/Not Resolved]
  - Vomiting [Not Recovered/Not Resolved]
  - Abdominal pain upper [Not Recovered/Not Resolved]
  - Motor dysfunction [Recovering/Resolving]
  - Aggression [Unknown]
  - Pain [Recovering/Resolving]
  - Affect lability [Unknown]
  - Hypoaesthesia [Not Recovered/Not Resolved]
  - Drug dose omission [Unknown]
